FAERS Safety Report 8079438-X (Version None)
Quarter: 2012Q1

REPORT INFORMATION
  Report Type: 
  Country: None (occurrence: None)
  Receive Date: 20120128
  Receipt Date: 20110826
  Transmission Date: 20120608
  Serious: No
  Sender: FDA-Public Use
  Company Number: US-ABBOTT-11P-163-0849314-00

PATIENT
  Age: 64 Year
  Sex: Male

DRUGS (11)
  1. CALCIUM [Concomitant]
     Indication: PSORIASIS
  2. HUMIRA [Suspect]
     Indication: PSORIASIS
     Dates: start: 20110824
  3. LANSOPRAZOLE [Concomitant]
     Indication: GASTRIC DISORDER
     Dosage: 40 MG
  4. VITAMIN E [Concomitant]
     Indication: PSORIASIS
  5. EXTRA STRENGTH HEADACHE MEDICATION FOR OVER THE COUNTER [Concomitant]
     Indication: PRODUCT USED FOR UNKNOWN INDICATION
  6. LUXIQ [Concomitant]
     Indication: PSORIASIS
  7. MULTI-VITAMIN [Concomitant]
     Indication: PSORIASIS
  8. LANTSEPTIC SKIN CREME [Concomitant]
     Indication: PRODUCT USED FOR UNKNOWN INDICATION
  9. CLOBETASOL [Concomitant]
     Indication: PSORIASIS
  10. LOSARTAN POTASSIUM [Concomitant]
     Indication: HYPERTENSION
     Dosage: 50 MG - DAILY
  11. FOLIC ACID [Concomitant]
     Indication: PSORIASIS
     Dosage: 5 MG - DAILY

REACTIONS (2)
  - MIGRAINE [None]
  - HEADACHE [None]
